FAERS Safety Report 21719228 (Version 1)
Quarter: 2022Q4

REPORT INFORMATION
  Report Type: Spontaneous
  Country: FR (occurrence: FR)
  Receive Date: 20221213
  Receipt Date: 20221213
  Transmission Date: 20230112
  Serious: Yes (Hospitalization, Other)
  Sender: FDA-Public Use
  Company Number: FR-ALKEM LABORATORIES LIMITED-FR-ALKEM-2022-13837

PATIENT
  Age: 54 Year
  Sex: Male
  Weight: 63 kg

DRUGS (1)
  1. VANCOMYCIN [Suspect]
     Active Substance: VANCOMYCIN
     Indication: Antibiotic therapy
     Dosage: 3000 MG/DAY DILUTED IN 5% GLUCOSE, 31.25MG/ML AT A MAXIMAL DOSAGE OF 4ML/HOUR)
     Route: 042

REACTIONS (3)
  - Skin necrosis [Recovering/Resolving]
  - Soft tissue necrosis [Recovering/Resolving]
  - Administration site calcification [Recovering/Resolving]
